FAERS Safety Report 4326137-3 (Version None)
Quarter: 2004Q1

REPORT INFORMATION
  Report Type: 
  Country: None (occurrence: None)
  Receive Date: 20040324
  Receipt Date: 20040311
  Transmission Date: 20041129
  Serious: Yes (Death)
  Sender: FDA-Public Use
  Company Number: 04H-087-0253150-00

PATIENT

DRUGS (3)
  1. HEPARIN SODIUM [Suspect]
     Indication: ANTICOAGULANT THERAPY
     Dosage: 1.5 MG/KG,
  2. NAFAMOSTAT MESILATE [Suspect]
     Indication: FIBRINOLYSIS DECREASED
     Dosage: 80 MG, CONSTANT INFUSION DURING CPB, INTRAVENOUS
     Route: 042
  3. COLD CRYSTALLOID CARDIOPLEGIA [Concomitant]

REACTIONS (2)
  - CEREBROVASCULAR ACCIDENT [None]
  - PROCEDURAL COMPLICATION [None]
